FAERS Safety Report 18338574 (Version 5)
Quarter: 2020Q4

REPORT INFORMATION
  Report Type: Spontaneous
  Country: US (occurrence: US)
  Receive Date: 20201002
  Receipt Date: 20201106
  Transmission Date: 20210113
  Serious: Yes (Hospitalization, Other)
  Sender: FDA-Public Use
  Company Number: US-ASTRAZENECA-2020SF25193

PATIENT
  Age: 19868 Day
  Sex: Male
  Weight: 126.1 kg

DRUGS (59)
  1. FARXIGA [Suspect]
     Active Substance: DAPAGLIFLOZIN PROPANEDIOL
     Indication: TYPE 2 DIABETES MELLITUS
     Dosage: 5.0MG UNKNOWN
     Route: 048
     Dates: start: 20181031
  2. FARXIGA [Suspect]
     Active Substance: DAPAGLIFLOZIN PROPANEDIOL
     Indication: BLOOD PRESSURE DECREASED
     Dosage: 5.0MG UNKNOWN
     Route: 048
     Dates: start: 20181031
  3. FENTANYL. [Concomitant]
     Active Substance: FENTANYL
  4. BETADINE [Concomitant]
     Active Substance: POVIDONE-IODINE
  5. CEFTRIAXONE. [Concomitant]
     Active Substance: CEFTRIAXONE
  6. VICTOZA [Concomitant]
     Active Substance: LIRAGLUTIDE
  7. CRANBERRY. [Concomitant]
     Active Substance: CRANBERRY
  8. KEFLEX [Concomitant]
     Active Substance: CEPHALEXIN
  9. CEPACOL [Concomitant]
     Active Substance: BENZOCAINE
  10. FARXIGA [Suspect]
     Active Substance: DAPAGLIFLOZIN PROPANEDIOL
     Indication: WEIGHT DECREASED
     Dosage: 5.0MG UNKNOWN
     Route: 048
     Dates: start: 20181031
  11. KETAMINE [Concomitant]
     Active Substance: KETAMINE
  12. ROCURONIUM [Concomitant]
     Active Substance: ROCURONIUM BROMIDE
  13. FERROUS SULFATE. [Concomitant]
     Active Substance: FERROUS SULFATE
  14. PENICILLIN G [Concomitant]
     Active Substance: PENICILLIN G
  15. SIMVASTATIN. [Concomitant]
     Active Substance: SIMVASTATIN
  16. BYDUREON [Concomitant]
     Active Substance: EXENATIDE
  17. ISOVUE [Concomitant]
     Active Substance: IOPAMIDOL
  18. NAPROSYN [Concomitant]
     Active Substance: NAPROXEN
  19. MORPHINE [Concomitant]
     Active Substance: MORPHINE
  20. SALINE [Concomitant]
     Active Substance: SODIUM CHLORIDE
  21. DOCUSATE SODIUM. [Concomitant]
     Active Substance: DOCUSATE SODIUM
  22. ZOSYN [Concomitant]
     Active Substance: PIPERACILLIN SODIUM\TAZOBACTAM SODIUM
  23. PHENYLEPHRINE [Concomitant]
     Active Substance: PHENYLEPHRINE HYDROCHLORIDE
  24. FENOFIBRATE. [Concomitant]
     Active Substance: FENOFIBRATE
  25. CIALIS [Concomitant]
     Active Substance: TADALAFIL
  26. VITAMIN D3 [Concomitant]
     Active Substance: CHOLECALCIFEROL
  27. IBUPROFEN. [Concomitant]
     Active Substance: IBUPROFEN
  28. HABITROL [Concomitant]
     Active Substance: NICOTINE
  29. FARXIGA [Suspect]
     Active Substance: DAPAGLIFLOZIN PROPANEDIOL
     Indication: BLOOD PRESSURE DECREASED
     Route: 048
     Dates: start: 20140707, end: 20181107
  30. PROPOFOL. [Concomitant]
     Active Substance: PROPOFOL
  31. SUGAMMADEX [Concomitant]
     Active Substance: SUGAMMADEX
  32. OFIRMEV [Concomitant]
     Active Substance: ACETAMINOPHEN
  33. VIAGRA [Concomitant]
     Active Substance: SILDENAFIL CITRATE
  34. ACTOS [Concomitant]
     Active Substance: PIOGLITAZONE HYDROCHLORIDE
  35. IRON DEXTRAN [Concomitant]
     Active Substance: IRON DEXTRAN
  36. GLYBURIDE. [Concomitant]
     Active Substance: GLYBURIDE
  37. VANCOMYCIN [Concomitant]
     Active Substance: VANCOMYCIN
  38. CLINDAMYCIN. [Concomitant]
     Active Substance: CLINDAMYCIN
  39. NORMOSOL-R [Concomitant]
     Active Substance: MAGNESIUM CHLORIDE\POTASSIUM CHLORIDE\SODIUM ACETATE ANHYDROUS\SODIUM CHLORIDE\SODIUM GLUCONATE
  40. ONDANSETRON [Concomitant]
     Active Substance: ONDANSETRON
  41. FOLEY [Concomitant]
  42. LOVENOX [Concomitant]
     Active Substance: ENOXAPARIN SODIUM
  43. FARXIGA [Suspect]
     Active Substance: DAPAGLIFLOZIN PROPANEDIOL
     Indication: TYPE 2 DIABETES MELLITUS
     Route: 048
     Dates: start: 20140707, end: 20181107
  44. SUCCINYLCHOLINE [Concomitant]
     Active Substance: SUCCINYLCHOLINE
  45. MAGNESIUM OXIDE. [Concomitant]
     Active Substance: MAGNESIUM OXIDE
  46. AMPICILLIN [Concomitant]
     Active Substance: AMPICILLIN
  47. WELCHOL [Concomitant]
     Active Substance: COLESEVELAM HYDROCHLORIDE
  48. CICLOPIROX. [Concomitant]
     Active Substance: CICLOPIROX
  49. LEVOPHED [Concomitant]
     Active Substance: NOREPINEPHRINE BITARTRATE
  50. FARXIGA [Suspect]
     Active Substance: DAPAGLIFLOZIN PROPANEDIOL
     Indication: WEIGHT DECREASED
     Route: 048
     Dates: start: 20140707, end: 20181107
  51. METFORMIN [Concomitant]
     Active Substance: METFORMIN HYDROCHLORIDE
  52. ARCIGA [Concomitant]
  53. LOSARTAN. [Concomitant]
     Active Substance: LOSARTAN
  54. HYDROXYBUTYRATE [Concomitant]
  55. LIDOCAINE. [Concomitant]
     Active Substance: LIDOCAINE
  56. POTASSIUM CHLORIDE. [Concomitant]
     Active Substance: POTASSIUM CHLORIDE
  57. ASCORBIC ACID. [Concomitant]
     Active Substance: ASCORBIC ACID
  58. NORCO [Concomitant]
     Active Substance: ACETAMINOPHEN\HYDROCODONE BITARTRATE
  59. MYCOSTATIN [Concomitant]
     Active Substance: NYSTATIN

REACTIONS (12)
  - Cellulitis [Unknown]
  - Metabolic acidosis [Unknown]
  - Septic shock [Unknown]
  - Perineal abscess [Unknown]
  - Scrotal abscess [Unknown]
  - Abscess limb [Unknown]
  - Tooth abscess [Unknown]
  - Groin abscess [Unknown]
  - Sepsis [Unknown]
  - Necrotising fasciitis [Unknown]
  - Fournier^s gangrene [Unknown]
  - Subcutaneous abscess [Unknown]

NARRATIVE: CASE EVENT DATE: 20181107
